FAERS Safety Report 7481536-6 (Version None)
Quarter: 2011Q2

REPORT INFORMATION
  Report Type: 
  Country: None (occurrence: None)
  Receive Date: 20110516
  Receipt Date: 20110506
  Transmission Date: 20111010
  Serious: Yes (Other)
  Sender: FDA-Public Use
  Company Number: US-ASTRAZENECA-2011SE27320

PATIENT

DRUGS (3)
  1. PLAVIX [Interacting]
     Route: 065
  2. PRILOSEC [Suspect]
     Route: 048
  3. PROTONIX [Interacting]
     Route: 065

REACTIONS (2)
  - CARDIAC DISORDER [None]
  - DRUG INTERACTION [None]
